FAERS Safety Report 14364347 (Version 1)
Quarter: 2018Q1

REPORT INFORMATION
  Report Type: Spontaneous
  Country: BR (occurrence: BR)
  Receive Date: 20180108
  Receipt Date: 20180108
  Transmission Date: 20180509
  Serious: Yes (Death, Hospitalization)
  Sender: FDA-Public Use
  Company Number: BR-PFIZER INC-2017398797

PATIENT
  Age: 71 Year
  Sex: Male

DRUGS (4)
  1. CODEIN [Concomitant]
     Active Substance: CODEINE
     Dosage: UNK
  2. SUTENT [Suspect]
     Active Substance: SUNITINIB MALATE
     Indication: METASTATIC RENAL CELL CARCINOMA
     Dosage: 50 MG, CYCLIC (DURING 4 WEEKS AND PAUSE FOR 2 WEEKS)
     Dates: start: 20170906
  3. LOSARTAN. [Concomitant]
     Active Substance: LOSARTAN
     Dosage: UNK
  4. AMLODIPINE [Concomitant]
     Active Substance: AMLODIPINE BESYLATE
     Dosage: UNK

REACTIONS (6)
  - Skin reaction [Recovered/Resolved]
  - Malaise [Not Recovered/Not Resolved]
  - Dry skin [Recovered/Resolved]
  - Aneurysm [Fatal]
  - Gait disturbance [Not Recovered/Not Resolved]
  - Sluggishness [Not Recovered/Not Resolved]

NARRATIVE: CASE EVENT DATE: 201709
